FAERS Safety Report 11271966 (Version 2)
Quarter: 2015Q3

REPORT INFORMATION
  Report Type: Spontaneous
  Country: US (occurrence: US)
  Receive Date: 20150715
  Receipt Date: 20150813
  Transmission Date: 20151125
  Serious: Yes (Hospitalization, Other)
  Sender: FDA-Public Use
  Company Number: US-ASTRAZENECA-2015SE66907

PATIENT
  Age: 766 Month
  Sex: Male
  Weight: 99.8 kg

DRUGS (27)
  1. FARXIGA [Suspect]
     Active Substance: DAPAGLIFLOZIN PROPANEDIOL
     Indication: DIABETES MELLITUS
     Route: 048
     Dates: start: 20150513, end: 20150519
  2. FARXIGA [Suspect]
     Active Substance: DAPAGLIFLOZIN PROPANEDIOL
     Indication: DIABETES MELLITUS
     Route: 048
     Dates: start: 20150519, end: 20150526
  3. DUODERM CGF BORDER DRESSING EXTERNAL [Concomitant]
  4. CIPRO [Concomitant]
     Active Substance: CIPROFLOXACIN HYDROCHLORIDE
     Route: 048
  5. METFORMIN [Concomitant]
     Active Substance: METFORMIN HYDROCHLORIDE
     Dosage: 500 MG ORAL TABLET, EXTENDED RELEASE, 2 A DAY
     Route: 048
  6. INSULIN GLARGINE [Concomitant]
     Active Substance: INSULIN GLARGINE
     Dosage: 20 UNITS
     Route: 058
  7. METANX [Concomitant]
     Active Substance: LEVOMEFOLATE CALCIUM\METHYLCOBALAMIN\PYRIDOXAL PHOSPHATE ANHYDROUS
     Route: 048
  8. ONE TOUCH ULTRA LANCETS [Concomitant]
  9. OXYCODONE [Concomitant]
     Active Substance: OXYCODONE
     Dosage: 10 MG EVERY 4 HRS AS REQUIRED
  10. COLLAGENASE [Concomitant]
     Active Substance: COLLAGENASE CLOSTRIDIUM HISTOLYTICUM
     Dosage: 1 APPLICATION TO LEFT LOWER LEG
     Route: 061
  11. TYLENOL [Concomitant]
     Active Substance: ACETAMINOPHEN
     Indication: PYREXIA
     Dosage: 650 MG, EVERY FOUR HOURS AS REQUIRED
  12. LASIX [Concomitant]
     Active Substance: FUROSEMIDE
     Route: 048
     Dates: end: 20150526
  13. GLUCOTROL XL [Concomitant]
     Active Substance: GLIPIZIDE
     Route: 048
  14. VITAMIN B12 [Concomitant]
     Active Substance: CYANOCOBALAMIN
     Dosage: 1000 MEG, ONE TABLET DAILY
     Route: 048
  15. ATORVASTATIN [Concomitant]
     Active Substance: ATORVASTATIN
     Route: 048
  16. FINASTERIDE. [Concomitant]
     Active Substance: FINASTERIDE
     Route: 048
  17. RAPAFLO [Concomitant]
     Active Substance: SILODOSIN
     Route: 048
  18. JANUVIA [Concomitant]
     Active Substance: SITAGLIPTIN PHOSPHATE
     Route: 048
  19. KEFLEX [Concomitant]
     Active Substance: CEPHALEXIN
     Route: 048
  20. LOVENOX [Concomitant]
     Active Substance: ENOXAPARIN SODIUM
     Route: 058
  21. CARVEDILOL. [Concomitant]
     Active Substance: CARVEDILOL
     Route: 048
  22. SILVADENE [Concomitant]
     Active Substance: SILVER SULFADIAZINE
     Route: 061
  23. MIDODRINE [Concomitant]
     Active Substance: MIDODRINE
  24. DOCUSATE/SENNA [Concomitant]
     Active Substance: DOCUSATE SODIUM\SENNA LEAF
  25. ASPIRIN. [Concomitant]
     Active Substance: ASPIRIN
     Route: 048
  26. SPIRONOLACTONE. [Concomitant]
     Active Substance: SPIRONOLACTONE
     Route: 048
  27. LANTUS [Concomitant]
     Active Substance: INSULIN GLARGINE
     Indication: DIABETES MELLITUS
     Dosage: 100 UNITS/ML SUBCUTANEOUS SOLUTION, 20 UNITS AT BEDTIME
     Route: 058

REACTIONS (14)
  - Oedema [Unknown]
  - Blood cholesterol increased [Unknown]
  - Weight decreased [Unknown]
  - Hypotension [Unknown]
  - Dizziness [Unknown]
  - Humerus fracture [Unknown]
  - Blindness [Unknown]
  - Syncope [Recovered/Resolved]
  - Fall [Recovered/Resolved]
  - Inguinal hernia [Unknown]
  - Blood glucose increased [Unknown]
  - Malaise [Unknown]
  - Urinary retention [Unknown]
  - Haematuria [Unknown]

NARRATIVE: CASE EVENT DATE: 201505
